FAERS Safety Report 6323941-7 (Version None)
Quarter: 2009Q3

REPORT INFORMATION
  Report Type: 
  Country: None (occurrence: None)
  Receive Date: 20090820
  Receipt Date: 20090806
  Transmission Date: 20100115
  Serious: Yes (Hospitalization)
  Sender: FDA-Public Use
  Company Number: JPI-P-008221

PATIENT
  Age: 57 Year
  Sex: Male

DRUGS (11)
  1. XYREM [Suspect]
     Indication: FIBROMYALGIA
     Dosage: SEE IMAGE, ORAL
     Route: 048
     Dates: start: 20080914, end: 20080922
  2. XYREM [Suspect]
     Indication: FIBROMYALGIA
     Dosage: SEE IMAGE, ORAL
     Route: 048
     Dates: start: 20080923, end: 20081027
  3. XYREM [Suspect]
     Indication: FIBROMYALGIA
     Dosage: SEE IMAGE, ORAL
     Route: 048
     Dates: start: 20081028, end: 20081125
  4. XYREM [Suspect]
     Indication: FIBROMYALGIA
     Dosage: SEE IMAGE, ORAL
     Route: 048
     Dates: start: 20081126, end: 20090106
  5. XYREM [Suspect]
     Indication: FIBROMYALGIA
     Dosage: SEE IMAGE, ORAL
     Route: 048
     Dates: start: 20081126, end: 20090106
  6. XYREM [Suspect]
     Indication: FIBROMYALGIA
     Dosage: SEE IMAGE, ORAL
     Route: 048
     Dates: start: 20090107, end: 20090121
  7. XYREM [Suspect]
     Indication: FIBROMYALGIA
     Dosage: SEE IMAGE, ORAL
     Route: 048
     Dates: start: 20090107, end: 20090121
  8. XYREM [Suspect]
     Indication: FIBROMYALGIA
     Dosage: SEE IMAGE, ORAL
     Route: 048
     Dates: start: 20090122, end: 20090302
  9. XYREM [Suspect]
     Indication: FIBROMYALGIA
     Dosage: SEE IMAGE, ORAL
     Route: 048
     Dates: start: 20090303, end: 20090701
  10. XYREM [Suspect]
     Indication: FIBROMYALGIA
     Dosage: SEE IMAGE, ORAL
     Route: 048
     Dates: start: 20090702, end: 20090802
  11. XYREM [Suspect]
     Indication: FIBROMYALGIA
     Dosage: SEE IMAGE, ORAL
     Route: 048
     Dates: start: 20090702, end: 20090802

REACTIONS (1)
  - PANCREATITIS [None]
